FAERS Safety Report 9079756 (Version 15)
Quarter: 2015Q2

REPORT INFORMATION
  Report Type: Spontaneous
  Country: US (occurrence: US)
  Receive Date: 20130215
  Receipt Date: 20150624
  Transmission Date: 20150821
  Serious: Yes (Hospitalization, Other)
  Sender: FDA-Public Use
  Company Number: US-GLAXOSMITHKLINE-A1012260A

PATIENT
  Age: 69 Year
  Sex: Female
  Weight: 59 kg

DRUGS (12)
  1. FLOLAN [Suspect]
     Active Substance: EPOPROSTENOL SODIUM
     Indication: PULMONARY HYPERTENSION
     Dosage: UNK
     Dates: start: 20060115
  2. FLOLAN [Suspect]
     Active Substance: EPOPROSTENOL SODIUM
     Dosage: 30 NG/KG/MIN
     Dates: start: 20060113
  3. FLOLAN [Suspect]
     Active Substance: EPOPROSTENOL SODIUM
     Indication: SYSTEMIC SCLEROSIS
     Dosage: UNK
     Dates: start: 20060115
  4. FLOLAN [Suspect]
     Active Substance: EPOPROSTENOL SODIUM
     Dosage: UNK
     Dates: start: 20060115
  5. FLOLAN [Suspect]
     Active Substance: EPOPROSTENOL SODIUM
     Indication: COR PULMONALE CHRONIC
     Dosage: 29 NG/KG/MINCONTINUOUSLYDOSE: 30 NG/KG/MIN CONTINUOUSLYCONCENTRATION 30,000 NG/MLVIAL STRENGTH:[...]
     Route: 042
     Dates: start: 20060115
  6. FLOLAN [Suspect]
     Active Substance: EPOPROSTENOL SODIUM
     Dosage: DOSE:30 NG/KG/MIN CONTINUOUSLY;CONCENTRATION:30,000 NG/ML;VIAL STRENGTH:1.5MG;PUMP RATE:80ML/DAY
     Route: 042
     Dates: start: 20060115
  7. FLOLAN [Suspect]
     Active Substance: EPOPROSTENOL SODIUM
     Dosage: 30 NG/KG/MIN (CONCENTRATION 30,000 NG/ML, PUMP RATE 80 ML/DAY, VIAL STRENGTH 1.5 MG), CO
     Route: 042
     Dates: start: 20060115
  8. COUMADIN [Concomitant]
     Active Substance: WARFARIN SODIUM
  9. REVATIO [Concomitant]
     Active Substance: SILDENAFIL CITRATE
  10. POTASSIUM CHLORIDE. [Concomitant]
     Active Substance: POTASSIUM CHLORIDE
  11. FLOLAN [Suspect]
     Active Substance: EPOPROSTENOL SODIUM
     Dosage: UNK
     Dates: start: 20060115
  12. FLOLAN [Suspect]
     Active Substance: EPOPROSTENOL SODIUM
     Dosage: UNK
     Dates: start: 20060115

REACTIONS (12)
  - Nasopharyngitis [Not Recovered/Not Resolved]
  - Influenza [Unknown]
  - Pneumonia [Recovered/Resolved]
  - Upper respiratory tract infection [Not Recovered/Not Resolved]
  - Asthma [Recovered/Resolved]
  - Catheter site swelling [Unknown]
  - Dyspnoea [Unknown]
  - Ear discomfort [Recovered/Resolved]
  - Pulmonary arterial hypertension [Recovered/Resolved]
  - Weight increased [Recovered/Resolved]
  - Intestinal obstruction [Unknown]
  - Nasal congestion [Recovered/Resolved]

NARRATIVE: CASE EVENT DATE: 201301
